FAERS Safety Report 5089000-9 (Version None)
Quarter: 2006Q3

REPORT INFORMATION
  Report Type: 
  Country: None (occurrence: None)
  Receive Date: 20060825
  Receipt Date: 20060822
  Transmission Date: 20061208
  Serious: Yes (Hospitalization, Disabling)
  Sender: FDA-Public Use
  Company Number: PHRM2006FR02366

PATIENT
  Sex: Female
  Weight: 53 kg

DRUGS (4)
  1. ZOMETA [Suspect]
     Indication: METASTASES TO BONE
     Route: 042
     Dates: start: 20050101, end: 20051001
  2. NAVELBINE [Concomitant]
  3. HERCEPTIN [Concomitant]
  4. TAMOXIFEN CITRATE [Concomitant]

REACTIONS (4)
  - BONE DISORDER [None]
  - HYPERBARIC OXYGEN THERAPY [None]
  - OSTEONECROSIS [None]
  - SURGERY [None]
